FAERS Safety Report 23097715 (Version 5)
Quarter: 2023Q4

REPORT INFORMATION
  Report Type: Report from Study
  Country: PL (occurrence: None)
  Receive Date: 20231023
  Receipt Date: 20231206
  Transmission Date: 20240110
  Serious: Yes (Life-Threatening, Hospitalization)
  Sender: FDA-Public Use
  Company Number: PL-ROCHE-3442497

PATIENT
  Age: 74 Year
  Sex: Male
  Weight: 58 kg

DRUGS (15)
  1. TIRAGOLUMAB [Suspect]
     Active Substance: TIRAGOLUMAB
     Indication: Oropharyngeal cancer
     Dosage: ON 11/SEP/2023 MOST RECENT DOSE OF BLINDED TIRAGOLUMAB WAS ADMINISTERED
     Route: 042
     Dates: start: 20211213
  2. ATEZOLIZUMAB [Suspect]
     Active Substance: ATEZOLIZUMAB
     Indication: Oropharyngeal cancer
     Dosage: ON 11/SEP/2023 MOST RECENT DOSE OF STUDY DRUG ATEZOLIZUMAB (1200MG) WAS ADMINISTERED
     Route: 041
     Dates: start: 20211213
  3. CICLOPIROX OLAMINE [Concomitant]
     Active Substance: CICLOPIROX OLAMINE
     Indication: Dry skin
     Dates: start: 20220328
  4. CICLOPIROX OLAMINE [Concomitant]
     Active Substance: CICLOPIROX OLAMINE
     Indication: Pruritus
  5. HASCOFUNGIN [Concomitant]
     Indication: Rash macular
     Dates: start: 20220328
  6. MOMETASONE FUROATE [Concomitant]
     Active Substance: MOMETASONE FUROATE
     Indication: Rash macular
     Dosage: MEDICATION DOSE 1 OTHER
     Route: 061
     Dates: start: 20220328
  7. MYDOCALM [Concomitant]
     Indication: Sciatica
     Route: 048
     Dates: start: 20230415
  8. EUTHYROX [Concomitant]
     Active Substance: LEVOTHYROXINE SODIUM
     Indication: Hypothyroidism
     Route: 048
     Dates: start: 20230522, end: 20230911
  9. EUTHYROX [Concomitant]
     Active Substance: LEVOTHYROXINE SODIUM
     Route: 048
     Dates: start: 20230912
  10. VINPOCETINE [Concomitant]
     Active Substance: VINPOCETINE
     Route: 048
     Dates: start: 202307
  11. NIMESULIDE [Concomitant]
     Active Substance: NIMESULIDE
     Indication: Pain prophylaxis
     Dates: start: 20230731
  12. BENSERAZIDE HYDROCHLORIDE\LEVODOPA [Concomitant]
     Active Substance: BENSERAZIDE HYDROCHLORIDE\LEVODOPA
     Indication: Parkinson^s disease
     Dosage: RECEIVED DOSE ON 22/AUG/2023
     Route: 048
     Dates: start: 20230717, end: 20230821
  13. BENSERAZIDE HYDROCHLORIDE\LEVODOPA [Concomitant]
     Active Substance: BENSERAZIDE HYDROCHLORIDE\LEVODOPA
     Route: 048
     Dates: start: 20230822
  14. MELOXICAM [Concomitant]
     Active Substance: MELOXICAM
     Indication: Sciatica
     Dates: start: 20230822
  15. CALCIUM [Concomitant]
     Active Substance: CALCIUM
     Dates: start: 20231020

REACTIONS (1)
  - Pemphigoid [Not Recovered/Not Resolved]

NARRATIVE: CASE EVENT DATE: 20230918
